FAERS Safety Report 16188300 (Version 1)
Quarter: 2019Q2

REPORT INFORMATION
  Report Type: Spontaneous
  Country: FR (occurrence: FR)
  Receive Date: 20190412
  Receipt Date: 20190412
  Transmission Date: 20190711
  Serious: Yes (Life-Threatening, Hospitalization)
  Sender: FDA-Public Use
  Company Number: FR-BEH-2012030714

PATIENT
  Age: 68 Year
  Sex: Female

DRUGS (3)
  1. COTAREG [Concomitant]
     Active Substance: HYDROCHLOROTHIAZIDE\VALSARTAN
     Indication: HYPERTENSION
     Route: 048
  2. PRIVIGEN [Suspect]
     Active Substance: HUMAN IMMUNOGLOBULIN G
     Indication: MYASTHENIA GRAVIS CRISIS
     Dosage: 30 G, QD
     Route: 042
     Dates: start: 20111206, end: 20111209
  3. METHYLPREDNISOLONE HEMISUCCINATE [Suspect]
     Active Substance: METHYLPREDNISOLONE HEMISUCCINATE
     Indication: MYASTHENIA GRAVIS CRISIS
     Dosage: UNK
     Route: 065
     Dates: start: 20111206

REACTIONS (7)
  - Blood pressure abnormal [Recovered/Resolved]
  - General physical health deterioration [Recovered/Resolved]
  - Cardiopulmonary failure [Recovered/Resolved]
  - Anxiety [Recovered/Resolved]
  - Acute myocardial infarction [Recovered/Resolved]
  - Acute coronary syndrome [Recovered/Resolved]
  - Chest pain [Recovered/Resolved]

NARRATIVE: CASE EVENT DATE: 20111208
